FAERS Safety Report 8018392-3 (Version None)
Quarter: 2012Q1

REPORT INFORMATION
  Report Type: 
  Country: None (occurrence: None)
  Receive Date: 20120103
  Receipt Date: 20111221
  Transmission Date: 20120608
  Serious: Yes (Hospitalization)
  Sender: FDA-Public Use
  Company Number: FR-SANOFI-AVENTIS-2011SA083588

PATIENT
  Age: 26 Year
  Sex: Female

DRUGS (1)
  1. PLAQUENIL [Suspect]
     Route: 048
     Dates: start: 20111011, end: 20111017

REACTIONS (4)
  - BURNING SENSATION [None]
  - EOSINOPHILIA [None]
  - RASH MACULO-PAPULAR [None]
  - PRURITUS [None]
